FAERS Safety Report 18835196 (Version 1)
Quarter: 2021Q1

REPORT INFORMATION
  Report Type: Spontaneous
  Country: IS (occurrence: IS)
  Receive Date: 20210203
  Receipt Date: 20210203
  Transmission Date: 20210419
  Serious: Yes (Other)
  Sender: FDA-Public Use
  Company Number: IS-SAMSUNG BIOEPIS-SB-2021-01990

PATIENT
  Sex: Female

DRUGS (1)
  1. FLIXABI [Suspect]
     Active Substance: INFLIXIMAB
     Indication: CROHN^S DISEASE
     Dosage: UNKNOWN
     Route: 042
     Dates: start: 2019

REACTIONS (13)
  - Mental disorder [Recovered/Resolved]
  - Asthenopia [Recovered/Resolved]
  - Pyrexia [Recovered/Resolved]
  - Fatigue [Recovered/Resolved]
  - Bone pain [Recovered/Resolved]
  - Arthralgia [Recovered/Resolved]
  - Infection [Recovered/Resolved]
  - Loss of personal independence in daily activities [Recovered/Resolved]
  - Product substitution issue [Recovered/Resolved]
  - Muscular weakness [Recovered/Resolved]
  - Illness [Recovered/Resolved]
  - Anxiety [Recovered/Resolved]
  - Patient isolation [Recovered/Resolved]

NARRATIVE: CASE EVENT DATE: 2019
